FAERS Safety Report 5226131-4 (Version None)
Quarter: 2007Q1

REPORT INFORMATION
  Report Type: 
  Country: None (occurrence: None)
  Receive Date: 20070201
  Receipt Date: 20070126
  Transmission Date: 20070707
  Serious: Yes (Life-Threatening)
  Sender: FDA-Public Use
  Company Number: GB-GLAXOSMITHKLINE-B0455939A

PATIENT
  Age: 80 Year
  Sex: Male

DRUGS (4)
  1. AVANDIA [Suspect]
     Route: 048
     Dates: start: 20050501, end: 20061101
  2. METFORMIN HCL [Concomitant]
  3. GLYBURIDE [Concomitant]
     Dates: start: 20060701
  4. ACARBOSE [Concomitant]

REACTIONS (3)
  - ATRIAL FIBRILLATION [None]
  - CARDIAC FAILURE CONGESTIVE [None]
  - HEPATOMEGALY [None]
